FAERS Safety Report 8770239 (Version 1)
Quarter: 2012Q4

REPORT INFORMATION
  Report Type: 
  Country: US (occurrence: US)
  Receive Date: 20120906
  Receipt Date: 20120906
  Transmission Date: 20130627
  Serious: Yes (Other)
  Sender: FDA-Public Use
  Company Number: US-ASTRAZENECA-2010SE25521

PATIENT
  Age: 51 Year
  Sex: Female

DRUGS (17)
  1. NEXIUM [Suspect]
     Indication: GASTROOESOPHAGEAL REFLUX DISEASE
     Route: 048
  2. OMEPRAZOLE [Suspect]
     Dosage: THREE TIMES A DAY
     Route: 048
  3. ZEGERID [Concomitant]
     Dosage: DAILY
  4. SYNTHROID [Concomitant]
  5. KLOR-CON [Concomitant]
  6. DIAMOX [Concomitant]
  7. XANAX [Concomitant]
     Dosage: 25, 2-3 TIMES DAILY
  8. CALCIUM WITH VITAMIN D [Concomitant]
     Dosage: CALCIUM 600/ VITAMIN D , 1 DAILY
  9. VITAMIN C [Concomitant]
  10. ASPIRIN [Concomitant]
  11. TIMOLOL EYE DROP [Concomitant]
     Dosage: 0.25, 1 DAILY
  12. TOPROL [Concomitant]
  13. LASIX [Concomitant]
  14. VERPAMIL [Concomitant]
     Dosage: 20, 1 DAILY
  15. TYLENOL [Concomitant]
     Dosage: 500 MG, TWO TIMES A DAY AS NEEDED
  16. LORTAB [Concomitant]
     Indication: PAIN
     Dosage: 7.5, AS NEEDED
  17. LORTAB [Concomitant]
     Indication: HEADACHE
     Dosage: 7.5, AS NEEDED

REACTIONS (6)
  - Brain neoplasm [Unknown]
  - Nausea [Unknown]
  - Malaise [Unknown]
  - Constipation [Unknown]
  - Drug ineffective [Unknown]
  - Drug dose omission [Unknown]
